FAERS Safety Report 18607352 (Version 4)
Quarter: 2021Q1

REPORT INFORMATION
  Report Type: Spontaneous
  Country: US (occurrence: US)
  Receive Date: 20201212
  Receipt Date: 20210228
  Transmission Date: 20210419
  Serious: No
  Sender: FDA-Public Use
  Company Number: US-LUPIN PHARMACEUTICALS INC.-2020-08762

PATIENT
  Age: 60 Year
  Sex: Female
  Weight: 59.41 kg

DRUGS (2)
  1. ALBUTEROL SULFATE INHALATION AEROSOL, 90 MCG/ACTUATION [Suspect]
     Active Substance: ALBUTEROL SULFATE
     Indication: ASTHMA
     Dosage: UNK UNK, PRN (2 PUFFS EVERY 6 HOURS)
     Dates: start: 20201008, end: 20201010
  2. ALBUTEROL SULFATE INHALATION AEROSOL, 90 MCG/ACTUATION [Suspect]
     Active Substance: ALBUTEROL SULFATE
     Dosage: UNK UNK, PRN (2 PUFFS EVERY 6 HOURS)
     Dates: start: 20201015, end: 20201017

REACTIONS (7)
  - Product preparation error [Unknown]
  - Poor quality device used [Unknown]
  - Device information output issue [Unknown]
  - Device malfunction [Unknown]
  - No adverse event [Unknown]
  - Drug dose omission by device [Unknown]
  - Device delivery system issue [Unknown]

NARRATIVE: CASE EVENT DATE: 202010
